FAERS Safety Report 7824207-6 (Version None)
Quarter: 2011Q4

REPORT INFORMATION
  Report Type: 
  Country: None (occurrence: None)
  Receive Date: 20111014
  Receipt Date: 20111005
  Transmission Date: 20120403
  Serious: Yes (Death, Congenital Anomaly)
  Sender: FDA-Public Use
  Company Number: AUR-APL-2011-05365

PATIENT

DRUGS (3)
  1. AZATHIOPRINE [Suspect]
     Indication: MATERNAL EXPOSURE DURING PREGNANCY
     Dosage: (1 D), TRANSPLACENTAL
     Route: 064
  2. PROGRAF [Suspect]
     Indication: MATERNAL EXPOSURE DURING PREGNANCY
     Dosage: (10 MG, 1 D), TRANSPLACENTAL
     Route: 064
  3. SERTRALINE HYDROCHLORIDE [Suspect]
     Indication: MATERNAL EXPOSURE DURING PREGNANCY
     Dosage: (100 MG, 1 D), TRANSPLACENTAL
     Route: 064

REACTIONS (9)
  - IMMUNOSUPPRESSANT DRUG LEVEL DECREASED [None]
  - PREMATURE BABY [None]
  - MATERNAL DRUGS AFFECTING FOETUS [None]
  - MULTIPLE CARDIAC DEFECTS [None]
  - DEATH NEONATAL [None]
  - DOUBLE OUTLET RIGHT VENTRICLE [None]
  - HYPOPLASTIC LEFT HEART SYNDROME [None]
  - VENTRICULAR SEPTAL DEFECT [None]
  - MITRAL VALVE ATRESIA [None]
